FAERS Safety Report 5893020-1 (Version None)
Quarter: 2008Q3

REPORT INFORMATION
  Report Type: 
  Country: None (occurrence: None)
  Receive Date: 20080923
  Receipt Date: 20070410
  Transmission Date: 20090109
  Serious: No
  Sender: FDA-Public Use
  Company Number: US-ASTRAZENECA-2007UW02094

PATIENT
  Age: 42 Year
  Sex: Male
  Weight: 70.9 kg

DRUGS (7)
  1. SEROQUEL [Suspect]
     Indication: BIPOLAR DISORDER
     Dosage: 25 MG-600 MG
     Route: 048
     Dates: start: 19980401, end: 20060201
  2. GEODON [Concomitant]
     Dosage: 80 MG-160 MG
     Dates: start: 20010601, end: 20010901
  3. RISPERDAL [Concomitant]
     Dosage: 2MG-4MG
     Dates: start: 20020101
  4. ZYPREXA [Concomitant]
     Dates: start: 19970501, end: 19970901
  5. LITHIUM CARBONATE [Concomitant]
     Dates: start: 19990601, end: 20000101
  6. DEPAKOTE [Concomitant]
     Dates: start: 20000901, end: 20050701
  7. LOXITANE [Concomitant]
     Dates: start: 19961001, end: 19980601

REACTIONS (5)
  - GASTRIC ULCER [None]
  - HEPATIC ENZYME INCREASED [None]
  - HYPERTENSION [None]
  - PNEUMONIA [None]
  - TYPE 2 DIABETES MELLITUS [None]
